FAERS Safety Report 5026749-8 (Version None)
Quarter: 2006Q2

REPORT INFORMATION
  Report Type: 
  Country: None (occurrence: None)
  Receive Date: 20060615
  Receipt Date: 20060605
  Transmission Date: 20061013
  Serious: Yes (Death)
  Sender: FDA-Public Use
  Company Number: US-MERCK-0606USA01291

PATIENT
  Age: 5 Year
  Sex: Female

DRUGS (4)
  1. MEFOXIN [Suspect]
     Indication: SEPTIC SHOCK
     Route: 042
  2. VANCOMYCIN [Suspect]
     Indication: SEPTIC SHOCK
     Route: 065
  3. MEROPENEM [Suspect]
     Indication: SEPTIC SHOCK
     Route: 065
  4. TOBRAMYCIN [Suspect]
     Indication: SEPTIC SHOCK
     Route: 065

REACTIONS (3)
  - CARDIAC ARREST [None]
  - CLOSTRIDIUM DIFFICILE SEPSIS [None]
  - COLITIS PSEUDOMEMBRANOUS [None]
